FAERS Safety Report 9195985 (Version 4)
Quarter: 2013Q3

REPORT INFORMATION
  Report Type: Report from Study
  Country: US (occurrence: US)
  Receive Date: 20130328
  Receipt Date: 20130716
  Transmission Date: 20140515
  Serious: Yes (Hospitalization)
  Sender: FDA-Public Use
  Company Number: PHEH2013US006851

PATIENT
  Sex: Female

DRUGS (2)
  1. GLEEVEC [Suspect]
     Indication: GASTRIC CANCER
     Dosage: 300 MG, BID (100 MG 3 TABLETS TWICE DAILY)
     Route: 048
     Dates: end: 201302
  2. GLEEVEC [Suspect]
     Dosage: 300 MG, BID
     Route: 048

REACTIONS (2)
  - Gastrointestinal disorder [Unknown]
  - Malaise [Unknown]
